FAERS Safety Report 19824324 (Version 2)
Quarter: 2021Q4

REPORT INFORMATION
  Report Type: Report from Study
  Country: KR (occurrence: KR)
  Receive Date: 20210913
  Receipt Date: 20211003
  Transmission Date: 20220303
  Serious: Yes (Hospitalization)
  Sender: FDA-Public Use
  Company Number: NVSC2021KR178201

PATIENT
  Age: 60 Year
  Sex: Male
  Weight: 59 kg

DRUGS (14)
  1. CAPECITABINE [Suspect]
     Active Substance: CAPECITABINE
     Indication: Colorectal cancer
     Dosage: 2150 MG, BID
     Route: 048
     Dates: start: 20210712, end: 20210802
  2. CAPECITABINE [Suspect]
     Active Substance: CAPECITABINE
     Dosage: 1.5 MG, BID
     Route: 048
     Dates: start: 20210808
  3. ALPELISIB [Suspect]
     Active Substance: ALPELISIB
     Indication: Colorectal cancer
     Dosage: 300 MG, QD
     Route: 048
     Dates: start: 20210712, end: 20210802
  4. ALPELISIB [Suspect]
     Active Substance: ALPELISIB
     Dosage: 300 MG, QD
     Route: 048
     Dates: start: 20210806
  5. NEXIUM [Concomitant]
     Active Substance: ESOMEPRAZOLE MAGNESIUM
     Indication: Dyspepsia
     Dosage: 40 MG, QD
     Route: 048
     Dates: start: 20210805
  6. PROBIOTICS NOS [Concomitant]
     Active Substance: PROBIOTICS NOS
     Indication: Diarrhoea
     Dosage: 20 MG, BID
     Route: 048
     Dates: start: 20210805
  7. KANARB [Concomitant]
     Indication: Hypertension
     Dosage: 30 MG, QD
     Route: 048
     Dates: start: 20200716
  8. MAGNESIUM HYDROXIDE [Concomitant]
     Active Substance: MAGNESIUM HYDROXIDE
     Indication: Constipation
     Dosage: 500 MG, PRN
     Route: 048
     Dates: start: 20201028
  9. LOPERAMIDE [Concomitant]
     Active Substance: LOPERAMIDE
     Indication: Diarrhoea
     Dosage: 2 MG, PRN
     Route: 048
     Dates: start: 20210713
  10. TYLENOL [Concomitant]
     Active Substance: ACETAMINOPHEN
     Indication: Pain
     Dosage: 650 MG, PRN
     Route: 048
     Dates: start: 20210713
  11. METHYLPREDNISOLONE ACEPONATE [Concomitant]
     Active Substance: METHYLPREDNISOLONE ACEPONATE
     Indication: Palmar-plantar erythrodysaesthesia syndrome
     Dosage: 15 MG, PRN
     Route: 061
     Dates: start: 20210713
  12. INSULIN NOS [Concomitant]
     Active Substance: INSULIN NOS
     Indication: Product used for unknown indication
     Dosage: UNK
     Route: 065
  13. TIROPRAMIDE [Concomitant]
     Active Substance: TIROPRAMIDE
     Indication: Metastases to peritoneum
     Dosage: 100 MG
     Route: 065
     Dates: start: 20210713
  14. METOCLOPRAMIDE HYDROCHLORIDE [Concomitant]
     Active Substance: METOCLOPRAMIDE HYDROCHLORIDE
     Indication: Nausea
     Dosage: 10 MG
     Route: 065
     Dates: start: 20210713

REACTIONS (3)
  - Stomatitis [Recovering/Resolving]
  - Weight decreased [Recovering/Resolving]
  - Hyperglycaemia [Recovering/Resolving]

NARRATIVE: CASE EVENT DATE: 20210802
